FAERS Safety Report 16668407 (Version 4)
Quarter: 2019Q4

REPORT INFORMATION
  Report Type: Spontaneous
  Country: US (occurrence: US)
  Receive Date: 20190805
  Receipt Date: 20191112
  Transmission Date: 20200122
  Serious: Yes (Other)
  Sender: FDA-Public Use
  Company Number: US-BAYER-2019-139594

PATIENT
  Age: 17 Year
  Sex: Male

DRUGS (3)
  1. KOGENATE FS [Suspect]
     Active Substance: ANTIHEMOPHILIC FACTOR, HUMAN RECOMBINANT
     Indication: HAEMOPHILIA
     Dosage: UNK
     Dates: start: 2004
  2. KOGENATE FS [Suspect]
     Active Substance: ANTIHEMOPHILIC FACTOR, HUMAN RECOMBINANT
     Indication: HAEMOPHILIA
     Dosage: 3 DOSES FOR TREATMENT OF MUSCLE BLEED
     Dates: start: 201907, end: 201907
  3. KOGENATE FS [Suspect]
     Active Substance: ANTIHEMOPHILIC FACTOR, HUMAN RECOMBINANT
     Indication: MUSCLE HAEMORRHAGE
     Dosage: TOTAL OF 6 DOSES WITH THIS LOT
     Dates: start: 2019, end: 2019

REACTIONS (3)
  - Muscle haemorrhage [Recovered/Resolved]
  - Recalled product [None]
  - Recalled product administered [None]

NARRATIVE: CASE EVENT DATE: 2019
